FAERS Safety Report 21961633 (Version 1)
Quarter: 2023Q1

REPORT INFORMATION
  Report Type: Spontaneous
  Country: FR (occurrence: FR)
  Receive Date: 20230207
  Receipt Date: 20230207
  Transmission Date: 20230417
  Serious: Yes (Hospitalization)
  Sender: FDA-Public Use
  Company Number: None

PATIENT
  Age: 61 Year
  Sex: Male
  Weight: 74 kg

DRUGS (3)
  1. VIMPAT [Suspect]
     Active Substance: LACOSAMIDE
     Indication: Epilepsy
     Dosage: 200MGX2X/J
     Route: 048
     Dates: start: 202102
  2. CLOBAZAM [Suspect]
     Active Substance: CLOBAZAM
     Indication: Epilepsy
     Dosage: 5MGX3X/J
     Route: 048
     Dates: start: 20221206
  3. PAROXETINE [Suspect]
     Active Substance: PAROXETINE
     Indication: Apathy
     Dosage: 20MGX1X/J
     Route: 048
     Dates: start: 20221216, end: 20230104

REACTIONS (2)
  - Transaminases increased [Recovered/Resolved]
  - Encephalopathy [Recovering/Resolving]

NARRATIVE: CASE EVENT DATE: 20221214
